FAERS Safety Report 17025752 (Version 5)
Quarter: 2024Q1

REPORT INFORMATION
  Report Type: Spontaneous
  Country: US (occurrence: US)
  Receive Date: 20191113
  Receipt Date: 20240116
  Transmission Date: 20240410
  Serious: Yes (Other)
  Sender: FDA-Public Use
  Company Number: US-PFIZER INC-2019480910

PATIENT
  Age: 66 Year
  Sex: Male

DRUGS (1)
  1. CLINDAMYCIN [Suspect]
     Active Substance: CLINDAMYCIN
     Indication: Antibiotic therapy
     Dosage: 300 MG
     Route: 048

REACTIONS (10)
  - Wrong technique in product usage process [Unknown]
  - Oesophagitis [Unknown]
  - Laryngitis [Unknown]
  - Oesophagitis chemical [Unknown]
  - Chemical burn of respiratory tract [Unknown]
  - Pharyngeal ulceration [Unknown]
  - Mucosal inflammation [Unknown]
  - Sensation of foreign body [Unknown]
  - Oesophageal ulcer [Unknown]
  - Laryngeal ulceration [Unknown]
